FAERS Safety Report 5696328-8 (Version None)
Quarter: 2008Q2

REPORT INFORMATION
  Report Type: 
  Country: None (occurrence: None)
  Receive Date: 20080407
  Receipt Date: 20080328
  Transmission Date: 20081010
  Serious: Yes (Other)
  Sender: FDA-Public Use
  Company Number: US-PFIZER INC-2007087914

PATIENT
  Sex: Female
  Weight: 56.818 kg

DRUGS (10)
  1. NEURONTIN [Suspect]
     Indication: MANIA
     Dates: start: 20030501, end: 20030601
  2. CHANTIX [Suspect]
     Indication: SMOKING CESSATION THERAPY
  3. LAMICTAL [Suspect]
     Indication: BIPOLAR DISORDER
  4. LITHOBID [Suspect]
     Indication: NERVOUSNESS
     Dates: start: 20050101, end: 20071012
  5. ZYPREXA [Suspect]
  6. DIGOXIN [Concomitant]
  7. WARFARIN SODIUM [Concomitant]
  8. ZOCOR [Concomitant]
  9. PROPRANOLOL [Concomitant]
  10. AMPICILLIN [Concomitant]

REACTIONS (11)
  - ABASIA [None]
  - ATRIAL FIBRILLATION [None]
  - DEHYDRATION [None]
  - DRUG INEFFECTIVE [None]
  - FALL [None]
  - FOOT OPERATION [None]
  - GLAUCOMA [None]
  - HYPOGLYCAEMIA [None]
  - MANIA [None]
  - NAUSEA [None]
  - PROTHROMBIN TIME SHORTENED [None]
